FAERS Safety Report 24047241 (Version 1)
Quarter: 2024Q3

REPORT INFORMATION
  Report Type: Spontaneous
  Country: JP (occurrence: None)
  Receive Date: 20240703
  Receipt Date: 20240703
  Transmission Date: 20241017
  Serious: Yes (Other)
  Sender: ASTRAZENECA
  Company Number: 2024A110185

PATIENT
  Age: 50 Year
  Sex: Male

DRUGS (4)
  1. ONDEXXYA [Suspect]
     Active Substance: ANDEXANET ALFA
     Dosage: DOSE UNKNOWN
     Route: 042
  2. APIXABAN [Concomitant]
     Active Substance: APIXABAN
     Route: 048
  3. NAFAMOSTAT MESYLATE [Concomitant]
     Active Substance: NAFAMOSTAT MESYLATE
     Dosage: 25 MG/HR
  4. NAFAMOSTAT MESYLATE [Concomitant]
     Active Substance: NAFAMOSTAT MESYLATE
     Dosage: 50 MG/HR

REACTIONS (1)
  - Thrombosis in device [Unknown]
